FAERS Safety Report 25534894 (Version 1)
Quarter: 2025Q3

REPORT INFORMATION
  Report Type: Spontaneous
  Country: US (occurrence: US)
  Receive Date: 20250709
  Receipt Date: 20250709
  Transmission Date: 20251020
  Serious: Yes (Hospitalization)
  Sender: ASTELLAS
  Company Number: US-ASTELLAS-2025-AER-034245

PATIENT
  Age: 59 Year
  Sex: Male

DRUGS (4)
  1. TACROLIMUS [Interacting]
     Active Substance: TACROLIMUS
     Indication: Heart transplant
     Route: 065
     Dates: start: 2016
  2. NIRMATRELVIR\RITONAVIR [Interacting]
     Active Substance: NIRMATRELVIR\RITONAVIR
     Indication: COVID-19
     Route: 065
  3. FOSPHENYTOIN [Interacting]
     Active Substance: FOSPHENYTOIN
     Indication: Drug metabolising enzyme increased
     Route: 042
  4. FOSPHENYTOIN [Interacting]
     Active Substance: FOSPHENYTOIN
     Indication: Nervous system disorder prophylaxis

REACTIONS (5)
  - COVID-19 [Recovering/Resolving]
  - Immunosuppressant drug level increased [Recovering/Resolving]
  - Blood creatinine increased [Recovering/Resolving]
  - Drug interaction [Unknown]
  - Drug interaction [Unknown]
